FAERS Safety Report 9030972 (Version 2)
Quarter: 2013Q1

REPORT INFORMATION
  Report Type: Spontaneous
  Country: US (occurrence: US)
  Receive Date: 20130123
  Receipt Date: 20130226
  Transmission Date: 20140127
  Serious: Yes (Hospitalization, Other)
  Sender: FDA-Public Use
  Company Number: US-BAXTER-2013BAX002302

PATIENT
  Age: 78 Year
  Sex: Female

DRUGS (1)
  1. DIANEAL LOW CALCIUM [Suspect]
     Indication: PERITONEAL DIALYSIS
     Route: 033

REACTIONS (7)
  - Medication error [Recovering/Resolving]
  - Fall [Recovering/Resolving]
  - Mental status changes [Recovering/Resolving]
  - Toxic encephalopathy [Recovering/Resolving]
  - Metabolic encephalopathy [Recovering/Resolving]
  - Urinary tract infection [Recovering/Resolving]
  - Fluid overload [Recovering/Resolving]
